FAERS Safety Report 4878536-9 (Version None)
Quarter: 2006Q1

REPORT INFORMATION
  Report Type: 
  Country: None (occurrence: None)
  Receive Date: 20060110
  Receipt Date: 20051227
  Transmission Date: 20060701
  Serious: Yes (Hospitalization)
  Sender: FDA-Public Use
  Company Number: SUSI-2005-00802

PATIENT
  Age: 7 Year
  Sex: Male
  Weight: 21.3 kg

DRUGS (2)
  1. ADDERALL 10 [Suspect]
     Indication: ATTENTION DEFICIT/HYPERACTIVITY DISORDER
     Dates: start: 20050901, end: 20051024
  2. CONCERTA [Concomitant]

REACTIONS (9)
  - CENTRAL LINE INFECTION [None]
  - HEPATITIS [None]
  - ORAL INTAKE REDUCED [None]
  - PATHOGEN RESISTANCE [None]
  - STAPHYLOCOCCAL INFECTION [None]
  - STEVENS-JOHNSON SYNDROME [None]
  - TACHYCARDIA [None]
  - THROMBOPHLEBITIS [None]
  - VENOUS THROMBOSIS [None]
